FAERS Safety Report 23304755 (Version 1)
Quarter: 2023Q4

REPORT INFORMATION
  Report Type: Spontaneous
  Country: JP (occurrence: JP)
  Receive Date: 20231218
  Receipt Date: 20231218
  Transmission Date: 20240109
  Serious: Yes (Death, Hospitalization, Other)
  Sender: FDA-Public Use
  Company Number: JP-AMGEN-JPNSP2023222013

PATIENT
  Age: 78 Year
  Sex: Female

DRUGS (1)
  1. SOTORASIB [Suspect]
     Active Substance: SOTORASIB
     Indication: Lung adenocarcinoma stage III
     Dosage: UNK
     Route: 048

REACTIONS (5)
  - General physical health deterioration [Fatal]
  - Lung adenocarcinoma [Unknown]
  - Dehydration [Unknown]
  - Pneumonia [Unknown]
  - Nausea [Unknown]
